FAERS Safety Report 9024931 (Version 2)
Quarter: 2013Q1

REPORT INFORMATION
  Report Type: Spontaneous
  Country: US (occurrence: None)
  Receive Date: 20121231
  Receipt Date: 20130111
  Transmission Date: 20140127
  Serious: Yes (Hospitalization, Other)
  Sender: FDA-Public Use
  Company Number: ACO_33468_2012

PATIENT
  Age: 61 Year
  Sex: Male
  Weight: 55.8 kg

DRUGS (11)
  1. AMPYRA (DALFAMPRIDINE) [Suspect]
     Indication: GAIT DISTURBANCE
     Dosage: 10 MG, Q 12 HRS, ORAL
     Route: 048
     Dates: start: 201211
  2. ALENDRONATE (ALENDRONATE SODIUM) [Concomitant]
  3. NAMENDA (MEMANTINE HYDROCHLORIDE) [Concomitant]
  4. GALANTAMINE (GALANTAMINE) [Concomitant]
  5. NUVIGIL (ARMODAFINIL) [Concomitant]
  6. OMEPRAZOLE (OMEPRAZOLE) [Concomitant]
  7. ARICEPT (DONEPEZIL HYDROCHLORIDE) [Concomitant]
  8. VESICARE (SOLIFENACIN SUCCINATE) [Concomitant]
  9. OXYBUTYNIN (OXYBUTYNIN) [Concomitant]
  10. BACLOFEN (BACLOFEN) [Concomitant]
  11. SANCTURA (TROSPIUM CHLORIDE) [Concomitant]

REACTIONS (13)
  - Gastroenteritis [None]
  - Fall [None]
  - Urinary tract infection [None]
  - Body temperature increased [None]
  - Vomiting [None]
  - Dehydration [None]
  - Blood creatinine increased [None]
  - Depression [None]
  - Gastritis [None]
  - Nausea [None]
  - Inappropriate schedule of drug administration [None]
  - Drug dose omission [None]
  - Renal failure acute [None]
